FAERS Safety Report 6565949-2 (Version None)
Quarter: 2010Q1

REPORT INFORMATION
  Report Type: 
  Country: None (occurrence: None)
  Receive Date: 20100129
  Receipt Date: 20100129
  Transmission Date: 20100710
  Serious: Yes (Life-Threatening)
  Sender: FDA-Public Use
  Company Number: None

PATIENT
  Age: 53 Year
  Sex: Male
  Weight: 80 kg

DRUGS (23)
  1. CIPROFLAXACIN [Suspect]
     Indication: BRONCHITIS
     Dosage: ONCE DAILY PO
     Route: 048
     Dates: start: 20100108, end: 20100110
  2. CEFTRIAXONE [Concomitant]
  3. AZITHROMYCIN [Concomitant]
  4. VANCOMYCIN [Concomitant]
  5. ALPRAZOLAM [Concomitant]
  6. CARVEDILOL [Concomitant]
  7. FENTANYL [Concomitant]
  8. WARFARIN SODIUM [Concomitant]
  9. HYDRALAZINE [Concomitant]
  10. MUCINEX [Concomitant]
  11. OXYCODONE HCL AND ACETAMINOPHEN [Concomitant]
  12. LISINOPRIL [Concomitant]
  13. NITROGLYCERIN SL [Concomitant]
  14. CINACALCET [Concomitant]
  15. CLONIDINE [Concomitant]
  16. THEOPHYLLINE [Concomitant]
  17. LEVOTHYROXINE SODIUM [Concomitant]
  18. FUROSEMIDE [Concomitant]
  19. PHOSLO [Concomitant]
  20. DOCUSATE [Concomitant]
  21. SENNOSIDES [Concomitant]
  22. ALBUTEROL [Concomitant]
  23. IPRATROPIUM [Concomitant]

REACTIONS (1)
  - TOXIC EPIDERMAL NECROLYSIS [None]
